FAERS Safety Report 8185588-X (Version None)
Quarter: 2012Q1

REPORT INFORMATION
  Report Type: 
  Country: None (occurrence: None)
  Receive Date: 20120305
  Receipt Date: 20120229
  Transmission Date: 20120608
  Serious: Yes (Hospitalization)
  Sender: FDA-Public Use
  Company Number: PHHY2012NL017865

PATIENT

DRUGS (1)
  1. GILENYA [Suspect]
     Dosage: UNK UKN, UNK
     Route: 048
     Dates: start: 20110831, end: 20120220

REACTIONS (4)
  - ERYTHEMA [None]
  - LYMPHOCYTE COUNT DECREASED [None]
  - PEAU D'ORANGE [None]
  - DERMATITIS [None]
